FAERS Safety Report 15050921 (Version 1)
Quarter: 2018Q2

REPORT INFORMATION
  Report Type: Spontaneous
  Country: US (occurrence: US)
  Receive Date: 20180622
  Receipt Date: 20180622
  Transmission Date: 20180711
  Serious: No
  Sender: FDA-Public Use
  Company Number: US-ASTELLAS-2018US012354

PATIENT
  Sex: Female

DRUGS (1)
  1. VESICARE [Suspect]
     Active Substance: SOLIFENACIN SUCCINATE
     Indication: RENAL DISORDER
     Dosage: 1 TABLET, ONCE DAILY
     Route: 065

REACTIONS (2)
  - Nasopharyngitis [Unknown]
  - Eye irritation [Unknown]
